FAERS Safety Report 7460790-0 (Version None)
Quarter: 2011Q2

REPORT INFORMATION
  Report Type: 
  Country: None (occurrence: None)
  Receive Date: 20110505
  Receipt Date: 20110427
  Transmission Date: 20111010
  Serious: Yes (Other)
  Sender: FDA-Public Use
  Company Number: PHHY2011TW18605

PATIENT
  Sex: Male

DRUGS (1)
  1. EXJADE [Suspect]
     Indication: APLASTIC ANAEMIA
     Dosage: 875 MG, UNK
     Route: 048

REACTIONS (4)
  - DRY SKIN [None]
  - NEPHROLITHIASIS [None]
  - BLOOD URINE PRESENT [None]
  - DYSURIA [None]
